FAERS Safety Report 18628963 (Version 2)
Quarter: 2021Q1

REPORT INFORMATION
  Report Type: Spontaneous
  Country: SE (occurrence: SE)
  Receive Date: 20201217
  Receipt Date: 20210203
  Transmission Date: 20210419
  Serious: Yes (Other)
  Sender: FDA-Public Use
  Company Number: SE-PFIZER INC-2020495529

PATIENT
  Age: 21 Year
  Sex: Male

DRUGS (4)
  1. ESCITALOPRAM [Suspect]
     Active Substance: ESCITALOPRAM OXALATE
     Indication: ANXIETY
     Dosage: 1 DF, 1X/DAY (5 MG ? 10 MG ONCE DAILY)
     Route: 048
     Dates: start: 20191222, end: 20200119
  2. ZOPICLONE [Concomitant]
     Active Substance: ZOPICLONE
     Dosage: UNK
     Dates: start: 201912, end: 202005
  3. ESCITALOPRAM [Suspect]
     Active Substance: ESCITALOPRAM OXALATE
     Indication: DEPRESSION
  4. SERTRALINE HCL [Suspect]
     Active Substance: SERTRALINE HYDROCHLORIDE
     Indication: SOCIAL ANXIETY DISORDER
     Dosage: 25 MG, DAILY
     Route: 048
     Dates: start: 20191209, end: 20191222

REACTIONS (2)
  - Agitation [Unknown]
  - Suicide attempt [Unknown]
